FAERS Safety Report 12539947 (Version 1)
Quarter: 2016Q3

REPORT INFORMATION
  Report Type: Spontaneous
  Country: US (occurrence: None)
  Receive Date: 20160707
  Receipt Date: 20160707
  Transmission Date: 20161109
  Serious: Yes (Other)
  Sender: FDA-Public Use
  Company Number: None

PATIENT
  Age: 80 Year
  Sex: Female
  Weight: 62.14 kg

DRUGS (29)
  1. METHOTREXATE. [Concomitant]
     Active Substance: METHOTREXATE
  2. VOLTAREN [Concomitant]
     Active Substance: DICLOFENAC SODIUM
  3. DYNOMINS [Concomitant]
  4. VITAMIN C [Concomitant]
     Active Substance: ASCORBIC ACID
  5. RESTASIS [Concomitant]
     Active Substance: CYCLOSPORINE
  6. OMEGA 3 FISH OIL [Concomitant]
     Active Substance: FISH OIL\OMEGA-3 FATTY ACIDS
  7. MV [Concomitant]
  8. BROMELAIN [Concomitant]
     Active Substance: BROMELAINS
  9. MAQUI BERRY EXTRACT [Concomitant]
  10. PROGESTERONE. [Concomitant]
     Active Substance: PROGESTERONE
  11. ESTRID [Concomitant]
  12. QUERCETIN [Concomitant]
     Active Substance: QUERCETIN
  13. FOLIC ACID. [Concomitant]
     Active Substance: FOLIC ACID
  14. BLACK SEED CUMIN OIL [Concomitant]
  15. EVENING PRIMROSE OIL [Concomitant]
     Active Substance: EVENING PRIMROSE OIL
  16. OLOPATADINE HCL [Concomitant]
     Active Substance: OLOPATADINE HYDROCHLORIDE
  17. ACETAMINOPHEN-COD [Concomitant]
     Active Substance: ACETAMINOPHEN\CODEINE PHOSPHATE
  18. PREDNISONE. [Concomitant]
     Active Substance: PREDNISONE
  19. LE MACUGUARD [Concomitant]
  20. LEVAQUIN [Suspect]
     Active Substance: LEVOFLOXACIN
     Indication: PNEUMONIA
     Dosage: 1 PILL 1+1 DAY, MOUTH
     Route: 048
     Dates: start: 20160601, end: 20160607
  21. VITAMIN D3 [Concomitant]
     Active Substance: CHOLECALCIFEROL
  22. VITAMIN B12 [Concomitant]
     Active Substance: CYANOCOBALAMIN
  23. NIACINAMIDE [Concomitant]
     Active Substance: NIACINAMIDE
  24. VITAMIN B COMPLEX [Concomitant]
     Active Substance: CYANOCOBALAMIN\DEXPANTHENOL\NIACINAMIDE\PYRIDOXINE HYDROCHLORIDE\RIBOFLAVIN 5^-PHOSPHATE SODIUM\THIAMINE HYDROCHLORIDE\VITAMIN B COMPLEX
  25. ALBUTEROL. [Concomitant]
     Active Substance: ALBUTEROL
  26. MELOXICAM. [Concomitant]
     Active Substance: MELOXICAM
  27. RESVERATROL [Concomitant]
     Active Substance: RESVERATROL
  28. VITAMIN B6 [Concomitant]
     Active Substance: PYRIDOXINE HYDROCHLORIDE
  29. TAURINE [Concomitant]
     Active Substance: TAURINE

REACTIONS (4)
  - Pain in extremity [None]
  - Peripheral swelling [None]
  - Tendon rupture [None]
  - Joint swelling [None]

NARRATIVE: CASE EVENT DATE: 20160606
